FAERS Safety Report 4458399-6 (Version None)
Quarter: 2004Q3

REPORT INFORMATION
  Report Type: 
  Country: None (occurrence: None)
  Receive Date: 20040924
  Receipt Date: 20030605
  Transmission Date: 20050211
  Serious: Yes (Disabling, Other)
  Sender: FDA-Public Use
  Company Number: US-MERCK-0306USA00861

PATIENT
  Sex: Male

DRUGS (6)
  1. LIPITOR [Concomitant]
     Route: 065
  2. MONOPRIL [Concomitant]
     Route: 065
  3. GLYBURIDE [Concomitant]
     Route: 065
  4. HYDRODIURIL [Concomitant]
     Route: 048
  5. IMDUR [Concomitant]
     Route: 065
  6. VIOXX [Suspect]
     Route: 048

REACTIONS (22)
  - ADVERSE EVENT [None]
  - ARTHRALGIA [None]
  - ATHEROSCLEROSIS [None]
  - CARDIAC DISORDER [None]
  - CARDIAC MURMUR [None]
  - CARDIAC STRESS TEST ABNORMAL [None]
  - CHEST PAIN [None]
  - CORONARY ARTERY DISEASE [None]
  - DRUG EFFECT DECREASED [None]
  - GASTROOESOPHAGEAL REFLUX DISEASE [None]
  - INJURY [None]
  - INTERMITTENT CLAUDICATION [None]
  - MYOCARDIAL ISCHAEMIA [None]
  - PAIN IN EXTREMITY [None]
  - PALPITATIONS [None]
  - PERIPHERAL VASCULAR DISORDER [None]
  - PLEURAL FIBROSIS [None]
  - ROTATOR CUFF SYNDROME [None]
  - SCAR [None]
  - SLEEP APNOEA SYNDROME [None]
  - VENTRICULAR DYSFUNCTION [None]
  - VENTRICULAR HYPERTROPHY [None]
